FAERS Safety Report 7713798-1 (Version None)
Quarter: 2011Q3

REPORT INFORMATION
  Report Type: 
  Country: None (occurrence: None)
  Receive Date: 20110826
  Receipt Date: 20110824
  Transmission Date: 20111222
  Serious: No
  Sender: FDA-Public Use
  Company Number: US-PFIZER INC-2011196899

PATIENT
  Sex: Female
  Weight: 80 kg

DRUGS (1)
  1. NEURONTIN [Suspect]
     Indication: NERVE INJURY
     Dosage: 800 MG, 2X/DAY
     Route: 048
     Dates: start: 20000101, end: 20100101

REACTIONS (1)
  - PAIN [None]
